FAERS Safety Report 9228957 (Version 2)
Quarter: 2013Q2

REPORT INFORMATION
  Report Type: Spontaneous
  Country: JP (occurrence: JP)
  Receive Date: 20130412
  Receipt Date: 20130422
  Transmission Date: 20140414
  Serious: No
  Sender: FDA-Public Use
  Company Number: JP-ASTRAZENECA-2012SE90634

PATIENT
  Age: 4 Month
  Sex: Male

DRUGS (4)
  1. SYNAGIS [Suspect]
     Indication: PREMATURE BABY
     Route: 030
     Dates: start: 20120905, end: 20120905
  2. SYNAGIS [Suspect]
     Indication: PREMATURE BABY
     Route: 030
     Dates: start: 20121004, end: 20121004
  3. LEVOTHYROXINE SODIUM HYDRATE [Concomitant]
  4. FERRIC PYROPHOSPHATE [Concomitant]

REACTIONS (2)
  - Swelling [Recovered/Resolved]
  - Rash [Recovered/Resolved]
